FAERS Safety Report 17202730 (Version 7)
Quarter: 2020Q1

REPORT INFORMATION
  Report Type: Spontaneous
  Country: BR (occurrence: BR)
  Receive Date: 20191226
  Receipt Date: 20200121
  Transmission Date: 20200409
  Serious: Yes (Life-Threatening, Hospitalization, Other)
  Sender: FDA-Public Use
  Company Number: BR-PFIZER INC-2019552873

PATIENT
  Age: 52 Year
  Sex: Male
  Weight: 90 kg

DRUGS (3)
  1. PREDNISOLONE. [Concomitant]
     Active Substance: PREDNISOLONE
     Dosage: 10 MG, UNK
  2. XELJANZ [Suspect]
     Active Substance: TOFACITINIB CITRATE
     Indication: RHEUMATOID ARTHRITIS
     Dosage: 10 MG, 2X/DAY
     Dates: start: 201706, end: 201809
  3. PREDNISONE. [Concomitant]
     Active Substance: PREDNISONE
     Dosage: 5 MG, UNK

REACTIONS (15)
  - Disseminated tuberculosis [Not Recovered/Not Resolved]
  - Bone disorder [Recovered/Resolved]
  - Spinal cord compression [Recovered/Resolved]
  - Dyspnoea [Recovered/Resolved]
  - Off label use [Recovered/Resolved]
  - Back pain [Not Recovered/Not Resolved]
  - Urinary incontinence [Recovered/Resolved]
  - Neuropathy peripheral [Unknown]
  - Pyrexia [Recovered/Resolved]
  - Spinal fracture [Recovered/Resolved]
  - Anal incontinence [Recovered/Resolved]
  - Product use issue [Recovered/Resolved]
  - Pericarditis constrictive [Recovered/Resolved]
  - Pleural effusion [Recovered/Resolved]
  - Paralysis [Not Recovered/Not Resolved]

NARRATIVE: CASE EVENT DATE: 201706
